FAERS Safety Report 22021488 (Version 1)
Quarter: 2023Q1

REPORT INFORMATION
  Report Type: Spontaneous
  Country: US (occurrence: None)
  Receive Date: 20230219
  Receipt Date: 20230219
  Transmission Date: 20230417
  Serious: No
  Sender: FDA-Public Use
  Company Number: None

PATIENT
  Age: 29 Year
  Sex: Female

DRUGS (1)
  1. KESIMPTA [Suspect]
     Active Substance: OFATUMUMAB
     Indication: Multiple sclerosis
     Dosage: 240MG OTHER SUBCUTANEOUS?
     Route: 058
     Dates: start: 202206

REACTIONS (1)
  - Product storage error [None]

NARRATIVE: CASE EVENT DATE: 20230218
